FAERS Safety Report 5884997-9 (Version None)
Quarter: 2008Q3

REPORT INFORMATION
  Report Type: 
  Country: None (occurrence: None)
  Receive Date: 20080916
  Receipt Date: 20080904
  Transmission Date: 20090109
  Serious: Yes (Hospitalization)
  Sender: FDA-Public Use
  Company Number: DE-BRISTOL-MYERS SQUIBB COMPANY-14253330

PATIENT
  Age: 68 Year
  Sex: Male
  Weight: 97 kg

DRUGS (4)
  1. CETUXIMAB [Suspect]
     Indication: COLORECTAL CANCER METASTATIC
     Dosage: START DATE 06-MAY-2008.
     Route: 042
     Dates: start: 20080701, end: 20080701
  2. FLUOROURACIL [Suspect]
     Indication: COLORECTAL CANCER METASTATIC
     Dosage: MOST RECENT INFUSION ON 01-JUL-2008.
     Route: 042
     Dates: start: 20080701, end: 20080701
  3. OXALIPLATIN [Suspect]
     Indication: COLORECTAL CANCER METASTATIC
     Dosage: START DATE 06-MAY-2008
     Route: 042
     Dates: start: 20080701, end: 20080701
  4. LEUCOVORIN CALCIUM [Concomitant]
     Indication: COLORECTAL CANCER METASTATIC
     Dosage: START DATE 06-MAY-2008
     Route: 042
     Dates: start: 20080701, end: 20080701

REACTIONS (3)
  - ANAEMIA [None]
  - DYSPNOEA [None]
  - PLEURAL EFFUSION [None]
